FAERS Safety Report 13930588 (Version 73)
Quarter: 2022Q2

REPORT INFORMATION
  Report Type: Spontaneous
  Country: JP (occurrence: JP)
  Receive Date: 20170901
  Receipt Date: 20220417
  Transmission Date: 20220721
  Serious: Yes (Hospitalization, Other)
  Sender: FDA-Public Use
  Company Number: JP-JNJFOC-20170827690

PATIENT
  Age: 50 Year
  Sex: Male
  Weight: 117 kg

DRUGS (157)
  1. RISPERDAL [Suspect]
     Active Substance: RISPERIDONE
     Indication: Bipolar disorder
     Dosage: OVERDOSE 2,OFF-LABEL USE 11 RISPERIDONE:1MG
     Route: 048
     Dates: end: 20150105
  2. RISPERDAL [Suspect]
     Active Substance: RISPERIDONE
     Dosage: OVERDOSE 2,OFF-LABEL USE 11 RISPERIDONE:1MG
     Route: 048
     Dates: start: 20150106, end: 20150202
  3. RISPERDAL [Suspect]
     Active Substance: RISPERIDONE
     Route: 048
     Dates: start: 20150203
  4. RISPERDAL [Suspect]
     Active Substance: RISPERIDONE
     Dosage: AS NECESSARY
     Route: 048
  5. RISPERDAL [Suspect]
     Active Substance: RISPERIDONE
     Dosage: P.R.N.(2 TIMES DAILY AT MOST)
     Route: 048
  6. RISPERDAL [Suspect]
     Active Substance: RISPERIDONE
     Dosage: P.R.N.(3 TIMES DAILY AT MOST)
     Route: 048
     Dates: start: 20160517, end: 20160613
  7. RISPERDAL [Suspect]
     Active Substance: RISPERIDONE
     Dosage: P.R.N.(4 TIMES DAILY AT MOST)
     Route: 048
     Dates: start: 20160614
  8. RISPERDAL [Suspect]
     Active Substance: RISPERIDONE
     Dosage: P.R.N.(4 TIMES DAILY AT MOST)
     Route: 048
     Dates: start: 20160623
  9. RISPERDAL [Suspect]
     Active Substance: RISPERIDONE
     Dosage: P.R.N.(8 TIMES DAILY AT MOST
     Route: 048
     Dates: start: 201607
  10. RISPERDAL [Suspect]
     Active Substance: RISPERIDONE
     Dosage: P.R.N.(4 TIMES DAILY AT MOST)
     Route: 048
     Dates: start: 20160722
  11. RISPERDAL [Suspect]
     Active Substance: RISPERIDONE
     Dosage: DOSE UNKNOWN
     Route: 048
  12. RISPERDAL [Suspect]
     Active Substance: RISPERIDONE
     Dosage: P.R.N.(4 TIMES DAILY AT MOST)
     Route: 048
  13. RISPERDAL [Suspect]
     Active Substance: RISPERIDONE
     Dosage: P.R.N.(4 TIMES DAILY AT MOST)
     Route: 048
  14. RISPERDAL [Suspect]
     Active Substance: RISPERIDONE
     Dosage: IN THE MORNING AND EVENIN
     Route: 048
     Dates: start: 20180702
  15. RISPERDAL [Suspect]
     Active Substance: RISPERIDONE
     Dosage: UNKNOWN
     Route: 048
     Dates: start: 20180706
  16. RISPERDAL [Suspect]
     Active Substance: RISPERIDONE
     Dosage: UNKNOWN,P.R.N
     Route: 048
     Dates: start: 2018
  17. RISPERDAL [Suspect]
     Active Substance: RISPERIDONE
     Dosage: UNKNOWN,4 TIMES P.R.N
     Route: 048
     Dates: start: 2018
  18. RISPERDAL [Suspect]
     Active Substance: RISPERIDONE
     Dosage: PARTLY P.R.N.
     Route: 048
     Dates: start: 2018
  19. RISPERDAL [Suspect]
     Active Substance: RISPERIDONE
     Dosage: P.R.N. UPTO 3 TIMES DAILY
     Route: 048
     Dates: start: 2018
  20. RISPERDAL [Suspect]
     Active Substance: RISPERIDONE
     Dosage: 3 TIMES IN THE MORNING
     Route: 048
     Dates: start: 2019, end: 2019
  21. RISPERDAL [Suspect]
     Active Substance: RISPERIDONE
     Dosage: P.R.N, UP TO 4 TIMES DAILY
     Route: 048
     Dates: start: 20190412
  22. RISPERDAL [Suspect]
     Active Substance: RISPERIDONE
     Route: 048
     Dates: start: 20200702
  23. RISPERDAL [Suspect]
     Active Substance: RISPERIDONE
     Route: 048
     Dates: start: 20200702
  24. RISPERDAL [Suspect]
     Active Substance: RISPERIDONE
     Indication: Bipolar disorder
     Route: 048
     Dates: start: 2003, end: 2003
  25. RISPERDAL [Suspect]
     Active Substance: RISPERIDONE
     Dosage: 6-8 MG PER DAY
     Route: 048
     Dates: start: 2003
  26. RISPERDAL [Suspect]
     Active Substance: RISPERIDONE
     Route: 048
     Dates: start: 201410
  27. RISPERDAL [Suspect]
     Active Substance: RISPERIDONE
     Route: 048
     Dates: start: 20141120
  28. RISPERDAL [Suspect]
     Active Substance: RISPERIDONE
     Route: 048
     Dates: start: 201911, end: 2019
  29. RISPERDAL [Suspect]
     Active Substance: RISPERIDONE
     Route: 048
     Dates: start: 2019, end: 2019
  30. RISPERDAL [Suspect]
     Active Substance: RISPERIDONE
     Route: 048
     Dates: start: 2019, end: 2019
  31. RISPERDAL [Suspect]
     Active Substance: RISPERIDONE
     Route: 048
     Dates: start: 2019, end: 2019
  32. RISPERDAL [Suspect]
     Active Substance: RISPERIDONE
     Dosage: UP TO 4 MG DAILY
     Route: 048
     Dates: start: 201912
  33. RISPERDAL [Suspect]
     Active Substance: RISPERIDONE
     Dosage: 4 TIMES PER DAY, P.R.N
     Route: 048
     Dates: start: 202004
  34. RISPERDAL [Suspect]
     Active Substance: RISPERIDONE
     Dosage: DOSE UNKNOWN
     Route: 048
     Dates: start: 202007
  35. RISPERDAL [Suspect]
     Active Substance: RISPERIDONE
     Dosage: DOSE UNKNOWN
     Route: 048
  36. RISPERDAL [Suspect]
     Active Substance: RISPERIDONE
     Dosage: DOSE UNKNOWN
     Route: 048
  37. RISPERDAL [Suspect]
     Active Substance: RISPERIDONE
     Dosage: DOSE UNKNOWN
     Route: 048
     Dates: start: 202202
  38. RISPERDAL [Suspect]
     Active Substance: RISPERIDONE
     Indication: Bipolar disorder
     Route: 048
     Dates: start: 20190329
  39. RISPERDAL [Suspect]
     Active Substance: RISPERIDONE
     Route: 048
     Dates: start: 20190422
  40. RISPERDAL [Suspect]
     Active Substance: RISPERIDONE
     Route: 048
     Dates: start: 20190423
  41. RISPERDAL [Suspect]
     Active Substance: RISPERIDONE
     Route: 048
  42. RISPERIDONE [Suspect]
     Active Substance: RISPERIDONE
     Indication: Bipolar disorder
     Route: 048
     Dates: start: 2003
  43. RISPERIDONE [Suspect]
     Active Substance: RISPERIDONE
     Route: 048
     Dates: start: 2019
  44. RISPERIDONE [Suspect]
     Active Substance: RISPERIDONE
     Route: 048
  45. RISPERIDONE [Suspect]
     Active Substance: RISPERIDONE
     Route: 048
  46. RISPERIDONE [Suspect]
     Active Substance: RISPERIDONE
     Route: 048
  47. RISPERIDONE [Suspect]
     Active Substance: RISPERIDONE
     Route: 048
  48. RISPERIDONE [Suspect]
     Active Substance: RISPERIDONE
     Route: 048
     Dates: start: 20210626
  49. RISPERIDONE [Suspect]
     Active Substance: RISPERIDONE
     Route: 048
     Dates: start: 2021, end: 2021
  50. RISPERIDONE [Suspect]
     Active Substance: RISPERIDONE
     Route: 048
     Dates: start: 2021
  51. RISPERIDONE [Suspect]
     Active Substance: RISPERIDONE
     Route: 048
  52. RISPERIDONE [Suspect]
     Active Substance: RISPERIDONE
     Route: 048
     Dates: end: 20211121
  53. RISPERIDONE [Suspect]
     Active Substance: RISPERIDONE
     Route: 048
     Dates: start: 20211122, end: 20211122
  54. RISPERIDONE [Suspect]
     Active Substance: RISPERIDONE
     Route: 048
     Dates: start: 2021
  55. LOXOPROFEN SODIUM [Suspect]
     Active Substance: LOXOPROFEN SODIUM
     Indication: Osteoarthritis
     Route: 048
  56. LOXOPROFEN SODIUM [Suspect]
     Active Substance: LOXOPROFEN SODIUM
     Indication: Osteoarthritis
     Route: 048
     Dates: start: 20180207
  57. PEROSPIRONE HYDROCHLORIDE [Suspect]
     Active Substance: PEROSPIRONE HYDROCHLORIDE
     Indication: Product used for unknown indication
     Route: 048
     Dates: start: 201911, end: 201912
  58. PEROSPIRONE HYDROCHLORIDE [Suspect]
     Active Substance: PEROSPIRONE HYDROCHLORIDE
     Route: 048
     Dates: start: 201912
  59. PEROSPIRONE HYDROCHLORIDE [Suspect]
     Active Substance: PEROSPIRONE HYDROCHLORIDE
     Route: 048
  60. PEROSPIRONE HYDROCHLORIDE [Suspect]
     Active Substance: PEROSPIRONE HYDROCHLORIDE
     Route: 048
  61. PEROSPIRONE HYDROCHLORIDE [Suspect]
     Active Substance: PEROSPIRONE HYDROCHLORIDE
     Route: 048
     Dates: start: 202106, end: 2021
  62. PEROSPIRONE HYDROCHLORIDE [Suspect]
     Active Substance: PEROSPIRONE HYDROCHLORIDE
     Route: 048
     Dates: start: 2021
  63. PEROSPIRONE HYDROCHLORIDE [Suspect]
     Active Substance: PEROSPIRONE HYDROCHLORIDE
     Route: 048
     Dates: end: 20211121
  64. PEROSPIRONE HYDROCHLORIDE [Suspect]
     Active Substance: PEROSPIRONE HYDROCHLORIDE
     Route: 048
     Dates: start: 20211122, end: 20211209
  65. PEROSPIRONE HYDROCHLORIDE [Suspect]
     Active Substance: PEROSPIRONE HYDROCHLORIDE
     Route: 048
     Dates: start: 20211210
  66. PEROSPIRONE HYDROCHLORIDE [Suspect]
     Active Substance: PEROSPIRONE HYDROCHLORIDE
     Route: 048
  67. INVEGA [Concomitant]
     Active Substance: PALIPERIDONE
     Dosage: MORNING
     Route: 048
     Dates: start: 20170117
  68. LORAZEPAM [Concomitant]
     Active Substance: LORAZEPAM
     Route: 048
  69. LORAZEPAM [Concomitant]
     Active Substance: LORAZEPAM
     Dosage: P.R.N.
     Route: 048
  70. AKINETON [Concomitant]
     Active Substance: BIPERIDEN HYDROCHLORIDE
     Route: 048
  71. AKINETON [Concomitant]
     Active Substance: BIPERIDEN HYDROCHLORIDE
     Dosage: P.R.N.(2 TIMES DAILY AT MOST)
     Route: 048
  72. AKINETON [Concomitant]
     Active Substance: BIPERIDEN HYDROCHLORIDE
     Dosage: P.R.N.(3 TIMES DAILY AT MOST)
     Route: 048
     Dates: start: 20150517
  73. AKINETON [Concomitant]
     Active Substance: BIPERIDEN HYDROCHLORIDE
     Dosage: P.R.N.(3 TIMES DAILY AT MOST)
     Route: 048
     Dates: start: 20160517, end: 20160613
  74. AKINETON [Concomitant]
     Active Substance: BIPERIDEN HYDROCHLORIDE
     Dosage: P.R.N.(4 TIMES DAILY AT MOST)
     Route: 048
     Dates: start: 20160614
  75. AKINETON [Concomitant]
     Active Substance: BIPERIDEN HYDROCHLORIDE
     Route: 048
  76. ZOPICLONE [Concomitant]
     Active Substance: ZOPICLONE
     Route: 048
  77. LEVOMEPROMAZINE [Concomitant]
     Active Substance: LEVOMEPROMAZINE
     Route: 048
  78. LEVOMEPROMAZINE [Concomitant]
     Active Substance: LEVOMEPROMAZINE
     Dosage: P.R.N.
     Route: 048
     Dates: start: 20150114, end: 20150114
  79. FLUNITRAZEPAM [Concomitant]
     Active Substance: FLUNITRAZEPAM
     Route: 048
  80. FLUNITRAZEPAM [Concomitant]
     Active Substance: FLUNITRAZEPAM
     Route: 048
  81. AMLODIPINE BESYLATE [Concomitant]
     Active Substance: AMLODIPINE BESYLATE
     Indication: Hypertension
     Dosage: IN SUMMER
     Route: 048
  82. AMLODIPINE BESYLATE [Concomitant]
     Active Substance: AMLODIPINE BESYLATE
     Indication: Hypertension
     Dosage: IN WINTER
     Route: 048
  83. AMLODIPINE BESYLATE [Concomitant]
     Active Substance: AMLODIPINE BESYLATE
     Indication: Hypertension
     Route: 048
     Dates: end: 20150219
  84. AMLODIPINE BESYLATE [Concomitant]
     Active Substance: AMLODIPINE BESYLATE
     Indication: Hypertension
     Route: 048
  85. AMLODIPINE BESYLATE [Concomitant]
     Active Substance: AMLODIPINE BESYLATE
     Indication: Hypertension
     Dosage: DOSE UNKNOWN, DECREASED
     Route: 048
  86. AMLODIPINE BESYLATE [Concomitant]
     Active Substance: AMLODIPINE BESYLATE
     Indication: Hypertension
     Dosage: UNKNOWN
     Route: 048
  87. DIOVAN [Concomitant]
     Active Substance: VALSARTAN
     Indication: Hypertension
     Route: 048
  88. DIOVAN [Concomitant]
     Active Substance: VALSARTAN
     Indication: Hypertension
     Route: 048
     Dates: end: 20170314
  89. DIOVAN [Concomitant]
     Active Substance: VALSARTAN
     Indication: Hypertension
     Route: 048
     Dates: start: 20170315
  90. DIOVAN [Concomitant]
     Active Substance: VALSARTAN
     Indication: Hypertension
     Dosage: DOSE UNKNOWN, DECREASED
     Route: 048
  91. DIOVAN [Concomitant]
     Active Substance: VALSARTAN
     Indication: Hypertension
     Dosage: UNKNOWN
     Route: 048
  92. ACTOS [Concomitant]
     Active Substance: PIOGLITAZONE HYDROCHLORIDE
     Dosage: UNKNOWN
     Route: 048
  93. METGLUCO [Concomitant]
     Active Substance: METFORMIN HYDROCHLORIDE
     Dosage: UNKNOWN
     Route: 048
  94. METGLUCO [Concomitant]
     Active Substance: METFORMIN HYDROCHLORIDE
     Dosage: IN THE MORNING, IN THE EVENING
     Route: 048
  95. AZELASTINE HYDROCHLORIDE [Concomitant]
     Active Substance: AZELASTINE HYDROCHLORIDE
     Dosage: UNKNOWN
     Route: 048
  96. XYLOCAINE [Concomitant]
     Active Substance: LIDOCAINE HYDROCHLORIDE
     Dosage: UNKNOWN
     Route: 065
  97. TIZANIDINE [Concomitant]
     Active Substance: TIZANIDINE
     Dosage: UNKNOWN
     Route: 048
  98. ETHYL LOFLAZEPATE [Concomitant]
     Active Substance: ETHYL LOFLAZEPATE
     Indication: Myoclonus
     Dosage: AFTER DINNER
     Route: 048
  99. ETHYL LOFLAZEPATE [Concomitant]
     Active Substance: ETHYL LOFLAZEPATE
     Indication: Myoclonus
     Dosage: MORNING
     Route: 048
  100. ETHYL LOFLAZEPATE [Concomitant]
     Active Substance: ETHYL LOFLAZEPATE
     Indication: Myoclonus
     Route: 048
     Dates: start: 2019
  101. ETHYL LOFLAZEPATE [Concomitant]
     Active Substance: ETHYL LOFLAZEPATE
     Indication: Myoclonus
     Dosage: DOSE UNKNOWN
     Route: 048
     Dates: start: 2021
  102. ETHYL LOFLAZEPATE [Concomitant]
     Active Substance: ETHYL LOFLAZEPATE
     Indication: Myoclonus
     Route: 048
     Dates: start: 20220404
  103. LAMICTAL [Concomitant]
     Active Substance: LAMOTRIGINE
     Indication: Bipolar disorder
     Dosage: AFTER DINNER
     Route: 048
     Dates: start: 201507
  104. LAMICTAL [Concomitant]
     Active Substance: LAMOTRIGINE
     Indication: Bipolar disorder
     Dosage: AFTER DINNER
     Route: 048
  105. LAMICTAL [Concomitant]
     Active Substance: LAMOTRIGINE
     Indication: Bipolar disorder
     Dosage: AFTER DINNER
     Route: 048
     Dates: start: 201602
  106. NITRAZEPAM [Concomitant]
     Active Substance: NITRAZEPAM
     Dosage: UNKNOWN
     Route: 048
     Dates: start: 20160728
  107. RIVOTRIL [Concomitant]
     Active Substance: CLONAZEPAM
     Indication: Anxiety
     Route: 048
  108. RIVOTRIL [Concomitant]
     Active Substance: CLONAZEPAM
     Indication: Anxiety
     Route: 048
  109. RIVOTRIL [Concomitant]
     Active Substance: CLONAZEPAM
     Indication: Anxiety
     Route: 048
  110. RIVOTRIL [Concomitant]
     Active Substance: CLONAZEPAM
     Indication: Anxiety
     Route: 048
     Dates: start: 20161220, end: 20170605
  111. RIVOTRIL [Concomitant]
     Active Substance: CLONAZEPAM
     Indication: Anxiety
     Route: 048
     Dates: start: 20170606, end: 2017
  112. RIVOTRIL [Concomitant]
     Active Substance: CLONAZEPAM
     Indication: Anxiety
     Route: 048
     Dates: start: 2017, end: 2018
  113. RIVOTRIL [Concomitant]
     Active Substance: CLONAZEPAM
     Indication: Anxiety
     Dosage: AT BEDTIME
     Route: 048
     Dates: start: 2018, end: 2018
  114. RIVOTRIL [Concomitant]
     Active Substance: CLONAZEPAM
     Indication: Anxiety
     Dosage: 0.5MG IN THE MORNING,0.5MG AT BEDTIME
     Route: 048
     Dates: start: 2018
  115. RIVOTRIL [Concomitant]
     Active Substance: CLONAZEPAM
     Indication: Anxiety
     Route: 048
     Dates: start: 20190319
  116. RIVOTRIL [Concomitant]
     Active Substance: CLONAZEPAM
     Indication: Anxiety
     Dosage: IN THE MORNING, IN THE EVENING, AT BEDTIME
     Route: 048
     Dates: start: 2019
  117. RIVOTRIL [Concomitant]
     Active Substance: CLONAZEPAM
     Indication: Anxiety
     Dosage: UNKNOWN
     Route: 048
     Dates: start: 20190730
  118. RIVOTRIL [Concomitant]
     Active Substance: CLONAZEPAM
     Indication: Myoclonus
     Dosage: DOSE UNKNOWN
     Route: 048
     Dates: start: 2021
  119. BELSOMRA [Concomitant]
     Active Substance: SUVOREXANT
     Indication: Insomnia
     Dosage: UNKNOWN
     Route: 048
     Dates: start: 20161220
  120. BELSOMRA [Concomitant]
     Active Substance: SUVOREXANT
     Indication: Insomnia
     Route: 048
     Dates: start: 20190328
  121. BELSOMRA [Concomitant]
     Active Substance: SUVOREXANT
     Indication: Insomnia
     Dosage: UNKNOWN
     Route: 048
     Dates: start: 20190422, end: 20190422
  122. DEPAS [Concomitant]
     Route: 048
  123. DEPAS [Concomitant]
     Route: 048
     Dates: start: 2019
  124. CALONAL [Concomitant]
     Active Substance: ACETAMINOPHEN
     Indication: Arthralgia
     Dosage: UNKNOWN
     Route: 048
     Dates: start: 20171003
  125. BROTIZOLAM [Concomitant]
     Active Substance: BROTIZOLAM
     Dosage: UNKNOWN
     Route: 048
  126. TIZANIDINE HYDROCHLORIDE [Concomitant]
     Active Substance: TIZANIDINE HYDROCHLORIDE
     Route: 048
     Dates: start: 20180213
  127. LITHIUM CARBONATE [Concomitant]
     Active Substance: LITHIUM CARBONATE
     Dosage: AFTER DINNER
     Route: 048
  128. LITHIUM CARBONATE [Concomitant]
     Active Substance: LITHIUM CARBONATE
     Route: 048
     Dates: start: 20180406
  129. LITHIUM CARBONATE [Concomitant]
     Active Substance: LITHIUM CARBONATE
     Route: 048
     Dates: start: 2018
  130. LITHIUM CARBONATE [Concomitant]
     Active Substance: LITHIUM CARBONATE
     Dosage: UNKNOWN
     Route: 048
     Dates: start: 2018, end: 2018
  131. LITHIUM CARBONATE [Concomitant]
     Active Substance: LITHIUM CARBONATE
     Route: 048
     Dates: start: 20181225
  132. TANDOSPIRONE [Concomitant]
     Active Substance: TANDOSPIRONE
     Route: 048
     Dates: start: 20180518
  133. TANDOSPIRONE [Concomitant]
     Active Substance: TANDOSPIRONE
     Route: 048
     Dates: start: 2018
  134. TANDOSPIRONE [Concomitant]
     Active Substance: TANDOSPIRONE
     Dosage: UNKNOWN
     Route: 048
     Dates: start: 2018, end: 2018
  135. LORAZEPAM [Concomitant]
     Active Substance: LORAZEPAM
     Dosage: P.R.N
     Route: 048
     Dates: start: 20180918
  136. LORAZEPAM [Concomitant]
     Active Substance: LORAZEPAM
     Dosage: UNKNOWN, IN THE MORNING
     Route: 048
     Dates: start: 2018
  137. LORAZEPAM [Concomitant]
     Active Substance: LORAZEPAM
     Route: 048
  138. LORAZEPAM [Concomitant]
     Active Substance: LORAZEPAM
     Dosage: 3 TIMES PER DAY, P.R.N
     Route: 048
  139. LITHIUM CARBONATE [Concomitant]
     Active Substance: LITHIUM CARBONATE
     Route: 065
  140. LITHIUM CARBONATE [Concomitant]
     Active Substance: LITHIUM CARBONATE
     Route: 065
  141. LITHIUM CARBONATE [Concomitant]
     Active Substance: LITHIUM CARBONATE
     Dosage: IN THE MORNING,IN THE EVENING
     Route: 065
  142. LITHIUM CARBONATE [Concomitant]
     Active Substance: LITHIUM CARBONATE
     Route: 065
     Dates: start: 20181225, end: 20190121
  143. LITHIUM CARBONATE [Concomitant]
     Active Substance: LITHIUM CARBONATE
     Route: 065
     Dates: start: 20190121
  144. LITHIUM CARBONATE [Concomitant]
     Active Substance: LITHIUM CARBONATE
     Route: 048
  145. LUNESTA [Concomitant]
     Active Substance: ESZOPICLONE
     Indication: Insomnia
     Dosage: IN THE DAYTIME
     Route: 048
  146. LUNESTA [Concomitant]
     Active Substance: ESZOPICLONE
     Indication: Insomnia
     Dosage: IN THE MORNING
     Route: 048
  147. LUNESTA [Concomitant]
     Active Substance: ESZOPICLONE
     Indication: Insomnia
     Dosage: AT BEDTIME
     Route: 048
  148. MIRABEGRON [Concomitant]
     Active Substance: MIRABEGRON
     Indication: Cystitis
     Dosage: UNKNOWN
     Route: 048
  149. CYMBALTA [Concomitant]
     Active Substance: DULOXETINE HYDROCHLORIDE
     Route: 048
     Dates: start: 201911, end: 2019
  150. CYMBALTA [Concomitant]
     Active Substance: DULOXETINE HYDROCHLORIDE
     Route: 048
     Dates: start: 2019, end: 2019
  151. CYMBALTA [Concomitant]
     Active Substance: DULOXETINE HYDROCHLORIDE
     Route: 048
     Dates: start: 2019
  152. CYMBALTA [Concomitant]
     Active Substance: DULOXETINE HYDROCHLORIDE
     Dosage: DOSE UNKNOWN
     Route: 048
  153. DULOXETINE HYDROCHLORIDE [Concomitant]
     Active Substance: DULOXETINE HYDROCHLORIDE
     Dosage: DOSE UNKNOWN
     Route: 048
  154. ETHYL LOFLAZEPATE [Concomitant]
     Active Substance: ETHYL LOFLAZEPATE
     Dosage: DOSE UNKNOWN
     Route: 048
  155. ETHYL LOFLAZEPATE [Concomitant]
     Active Substance: ETHYL LOFLAZEPATE
     Route: 048
  156. CLONAZEPAM [Concomitant]
     Active Substance: CLONAZEPAM
     Route: 048
  157. PEROSPIRONE HYDROCHLORIDE HYDRATE [Concomitant]
     Active Substance: PEROSPIRONE HYDROCHLORIDE HYDRATE
     Indication: Persistent depressive disorder
     Route: 048

REACTIONS (85)
  - Withdrawal syndrome [Unknown]
  - Drug abuse [Unknown]
  - Arteriosclerosis [Unknown]
  - Parkinsonism [Recovered/Resolved]
  - Gastrointestinal haemorrhage [Unknown]
  - Diabetic neuropathy [Unknown]
  - Akathisia [Recovered/Resolved]
  - Diabetes mellitus [Unknown]
  - Orthostatic hypotension [Unknown]
  - Drug dependence [Unknown]
  - Abdominal distension [Unknown]
  - Loss of consciousness [Unknown]
  - Blood pressure decreased [Unknown]
  - Psychotic disorder [Unknown]
  - Hyperuricaemia [Unknown]
  - Gastric ulcer haemorrhage [Unknown]
  - Abdominal discomfort [Unknown]
  - Tardive dyskinesia [Recovering/Resolving]
  - Irritability [Not Recovered/Not Resolved]
  - Anxiety [Not Recovered/Not Resolved]
  - Logorrhoea [Recovered/Resolved]
  - Bradykinesia [Recovered/Resolved]
  - Constipation [Unknown]
  - Irritability [Not Recovered/Not Resolved]
  - Malaise [Unknown]
  - Musculoskeletal stiffness [Unknown]
  - Thinking abnormal [Unknown]
  - Somnolence [Recovered/Resolved]
  - Depression [Unknown]
  - Disturbance in attention [Unknown]
  - Hepatic function abnormal [Recovered/Resolved]
  - Hypomania [Unknown]
  - Incontinence [Recovered/Resolved]
  - Tremor [Recovered/Resolved]
  - Somatic symptom disorder [Unknown]
  - Aphonia [Unknown]
  - Hypoaesthesia [Unknown]
  - Fall [Unknown]
  - Dyskinesia [Unknown]
  - Mass [Unknown]
  - Dehydration [Unknown]
  - Palpitations [Unknown]
  - Road traffic accident [Unknown]
  - Plantar fasciitis [Unknown]
  - Chest discomfort [Unknown]
  - Decreased appetite [Unknown]
  - Apathy [Unknown]
  - Depressed mood [Unknown]
  - Dizziness [Unknown]
  - Dizziness postural [Unknown]
  - Dysphoria [Unknown]
  - Feeling abnormal [Unknown]
  - Gamma-glutamyltransferase increased [Unknown]
  - Increased appetite [Unknown]
  - Insomnia [Unknown]
  - Nausea [Unknown]
  - Pain in extremity [Unknown]
  - Stress [Unknown]
  - Glycosylated haemoglobin increased [Unknown]
  - Haemoglobin decreased [Unknown]
  - Back pain [Unknown]
  - Panic reaction [Unknown]
  - Restlessness [Unknown]
  - Asthenia [Unknown]
  - Dyslalia [Unknown]
  - Mood altered [Unknown]
  - Feeling abnormal [Unknown]
  - Heat illness [Unknown]
  - Amnesia [Unknown]
  - Fatigue [Unknown]
  - Nightmare [Unknown]
  - Flank pain [Unknown]
  - Dysphoria [Unknown]
  - Rash [Unknown]
  - Injury [Unknown]
  - Hypertension [Unknown]
  - Pleurothotonus [Recovering/Resolving]
  - Salivary hypersecretion [Not Recovered/Not Resolved]
  - Stupor [Not Recovered/Not Resolved]
  - Inappropriate schedule of product administration [Unknown]
  - Treatment noncompliance [Unknown]
  - Therapeutic product effect incomplete [Unknown]
  - Overdose [Unknown]
  - Off label use [Unknown]
  - Product use in unapproved indication [Unknown]

NARRATIVE: CASE EVENT DATE: 20030101
